FAERS Safety Report 7945611-1 (Version None)
Quarter: 2011Q4

REPORT INFORMATION
  Report Type: 
  Country: None (occurrence: None)
  Receive Date: 20111129
  Receipt Date: 20111117
  Transmission Date: 20120403
  Serious: Yes (Other)
  Sender: FDA-Public Use
  Company Number: US-JNJFOC-20111108115

PATIENT
  Sex: Female
  Weight: 59.88 kg

DRUGS (3)
  1. REMICADE [Suspect]
     Indication: CROHN'S DISEASE
     Route: 042
     Dates: start: 20110101
  2. REMICADE [Suspect]
     Route: 042
     Dates: start: 20090101, end: 20110101
  3. FLU VACCINE [Concomitant]
     Dates: start: 20111027

REACTIONS (5)
  - NEUROPATHY PERIPHERAL [None]
  - FATIGUE [None]
  - HERPES ZOSTER [None]
  - ANTINUCLEAR ANTIBODY POSITIVE [None]
  - GASTRIC DISORDER [None]
